FAERS Safety Report 10579460 (Version 1)
Quarter: 2014Q4

REPORT INFORMATION
  Report Type: Spontaneous
  Country: IT (occurrence: IT)
  Receive Date: 20141112
  Receipt Date: 20141112
  Transmission Date: 20150529
  Serious: Yes (Hospitalization)
  Sender: FDA-Public Use
  Company Number: IT-TEVA-521087ISR

PATIENT
  Age: 57 Year
  Sex: Male

DRUGS (3)
  1. CARBOPLATINO TEVA [Suspect]
     Active Substance: CARBOPLATIN
     Indication: LUNG ADENOCARCINOMA
     Dosage: 350 MILLIGRAM DAILY;
     Route: 042
     Dates: start: 20141007, end: 20141007
  2. ACIDO ZOLEDRONICO MYLAN [Concomitant]
     Indication: METASTASES TO BONE
     Dosage: 4 MILLIGRAM DAILY;
     Route: 042
     Dates: start: 20140701, end: 20140701
  3. ALIMTA [Suspect]
     Active Substance: PEMETREXED DISODIUM
     Indication: LUNG ADENOCARCINOMA
     Dosage: 800 MG/M2 DAILY;
     Route: 042
     Dates: start: 20140617, end: 20141007

REACTIONS (2)
  - Pancytopenia [Recovering/Resolving]
  - Hypercreatinaemia [Recovering/Resolving]

NARRATIVE: CASE EVENT DATE: 20141024
